FAERS Safety Report 9589376 (Version 2)
Quarter: 2013Q4

REPORT INFORMATION
  Report Type: Spontaneous
  Country: IL (occurrence: IL)
  Receive Date: 20131003
  Receipt Date: 20131003
  Transmission Date: 20140711
  Serious: Yes (Life-Threatening, Hospitalization)
  Sender: FDA-Public Use
  Company Number: IL-B.I. PHARMACEUTICALS,INC./RIDGEFIELD-2013-BI-28524RI

PATIENT
  Age: 83 Year
  Sex: Male

DRUGS (10)
  1. PRADAXA [Suspect]
     Indication: ATRIAL FIBRILLATION
     Route: 048
     Dates: end: 20130904
  2. FOLIC ACID [Concomitant]
     Route: 048
  3. ALDACTONE [Concomitant]
     Route: 048
  4. ALLORIL [Concomitant]
  5. LOSEC [Concomitant]
  6. SIMVASTATIN [Concomitant]
     Route: 048
  7. XATRAL [Concomitant]
     Route: 048
  8. ENALAPRIL [Concomitant]
     Route: 048
  9. VITAMIN K [Concomitant]
  10. ASPIRIN [Concomitant]
     Route: 048

REACTIONS (2)
  - Subdural haematoma [Recovered/Resolved]
  - Fall [Recovered/Resolved]
